FAERS Safety Report 9364655 (Version 1)
Quarter: 2013Q2

REPORT INFORMATION
  Report Type: Spontaneous
  Country: US (occurrence: US)
  Receive Date: 20130624
  Receipt Date: 20130624
  Transmission Date: 20140414
  Serious: Yes (Other)
  Sender: FDA-Public Use
  Company Number: US-UCBSA-089305

PATIENT
  Sex: Female

DRUGS (6)
  1. CIMZIA [Suspect]
     Dosage: DOSE : PREDNISONE
  2. PREDNISONE [Suspect]
     Dosage: DOSE: UNKNOWN
  3. AZATHIOPRINE [Concomitant]
  4. CYTOXAN [Concomitant]
  5. HUMIRA [Concomitant]
  6. REMICADE [Concomitant]

REACTIONS (9)
  - Pulmonary fibrosis [Unknown]
  - Premature delivery [Unknown]
  - Neuropathy peripheral [Unknown]
  - Arthropathy [Unknown]
  - Fluid retention [Unknown]
  - Arthralgia [Unknown]
  - Pain [Unknown]
  - Fatigue [Unknown]
  - Pregnancy [Recovered/Resolved]
